FAERS Safety Report 8971154 (Version 1)
Quarter: 2012Q4

REPORT INFORMATION
  Report Type: Report from Study
  Country: FR (occurrence: FR)
  Receive Date: 20121218
  Receipt Date: 20121218
  Transmission Date: 20130627
  Serious: Yes (Hospitalization)
  Sender: FDA-Public Use
  Company Number: FR-PFIZER INC-2012314074

PATIENT
  Age: 54 Year
  Sex: Male

DRUGS (10)
  1. IRINOTECAN HCL [Suspect]
     Indication: COLORECTAL CANCER METASTATIC
     Dosage: 322 mg, every 2 weeks
     Route: 042
     Dates: start: 20100112, end: 20100216
  2. FLUOROURACIL [Suspect]
     Indication: METASTATIC COLORECTAL CANCER
     Dosage: 720 mg, every 2 weeks
     Route: 040
     Dates: start: 20100112
  3. FLUOROURACIL [Suspect]
     Dosage: 530 mg, every 2 weeks
     Route: 040
     Dates: start: 20100302
  4. FLUOROURACIL [Suspect]
     Dosage: 4300 mg, every 2 weeks
     Route: 041
     Dates: start: 20100112
  5. FLUOROURACIL [Suspect]
     Dosage: 3150 mg, every 2 weeks
     Route: 041
  6. ELVORINE [Suspect]
     Indication: COLORECTAL CANCER METASTATIC
     Dosage: 350 mg, every 2 weeks
     Dates: start: 20100112
  7. BEVACIZUMAB [Suspect]
     Indication: COLORECTAL CANCER METASTATIC
     Dosage: 285 mg, every 2 weeks
     Route: 042
     Dates: start: 20100112
  8. ZOPHREN [Concomitant]
     Dosage: UNK
     Dates: start: 20100112
  9. IMODIUM [Concomitant]
     Dosage: UNK
     Dates: start: 20100112
  10. SOLUPRED [Concomitant]

REACTIONS (2)
  - Dehydration [Recovered/Resolved]
  - General physical health deterioration [Recovered/Resolved]
